FAERS Safety Report 8803813 (Version 2)
Quarter: 2013Q1

REPORT INFORMATION
  Report Type: Spontaneous
  Country: US (occurrence: US)
  Receive Date: 20120923
  Receipt Date: 20130120
  Transmission Date: 20140127
  Serious: No
  Sender: FDA-Public Use
  Company Number: US-009507513-1209USA006990

PATIENT
  Age: 25 Year
  Sex: Female
  Weight: 70.75 kg

DRUGS (1)
  1. IMPLANON [Suspect]
     Indication: CONTRACEPTION
     Dosage: 1 ROD/EVERY 3 YEARS
     Dates: start: 20090908

REACTIONS (2)
  - Nausea [Not Recovered/Not Resolved]
  - Incorrect drug administration duration [Unknown]
